FAERS Safety Report 5919263-6 (Version None)
Quarter: 2008Q4

REPORT INFORMATION
  Report Type: 
  Country: None (occurrence: None)
  Receive Date: 20081015
  Receipt Date: 20081003
  Transmission Date: 20090506
  Serious: Yes (Disabling, Other)
  Sender: FDA-Public Use
  Company Number: PHHY2008GB21759

PATIENT
  Sex: Female

DRUGS (19)
  1. ZOLEDRONIC ACID [Suspect]
     Indication: OSTEOPOROSIS
     Dosage: 5 MG/100 ML
     Route: 042
     Dates: start: 20080730
  2. DIHYDROCODEINE BITARTRATE INJ [Concomitant]
     Dosage: 60 MG
  3. HYPROMELLOSE [Concomitant]
     Dosage: PRN
  4. LACRI-LUBE [Concomitant]
     Dosage: PRN
  5. ZOPICLONE [Concomitant]
     Dosage: 7.5MG 1 NOCTE
  6. BUMETANIDE [Concomitant]
     Dosage: 1 MG
  7. METOCLOPRAMIDE [Concomitant]
     Dosage: 10 MG, TID
  8. OMEPRAZOLE [Concomitant]
     Dosage: 10 MG
  9. HYDROXYCHLOROQUINE [Concomitant]
     Dosage: 200 MG, BID
  10. AMITRIPTYLINE HCL [Concomitant]
     Dosage: 10 MG
  11. MIRTAZAPINE [Concomitant]
     Dosage: 45 MG
  12. ASPIRIN [Concomitant]
     Dosage: 75 MG
  13. ADALAT [Concomitant]
     Dosage: 20 MG
  14. LISINOPRIL [Concomitant]
     Dosage: 20 MG
  15. MOVICOL [Concomitant]
  16. ALLOPURINOL [Concomitant]
     Dosage: 300 MG
  17. METFORMIN [Concomitant]
     Dosage: 500 MG, BID
  18. SIMVASTATIN [Concomitant]
     Dosage: 20 MG, BID
  19. ACETAMINOPHEN [Concomitant]

REACTIONS (5)
  - ARTHRALGIA [None]
  - CHEST PAIN [None]
  - DYSPNOEA [None]
  - FIBROMYALGIA [None]
  - PAIN [None]
